FAERS Safety Report 10465331 (Version 2)
Quarter: 2014Q4

REPORT INFORMATION
  Report Type: Spontaneous
  Country: US (occurrence: US)
  Receive Date: 20140919
  Receipt Date: 20141031
  Transmission Date: 20150528
  Serious: Yes (Other)
  Sender: FDA-Public Use
  Company Number: US-PFIZER INC-2014259206

PATIENT
  Age: 57 Year
  Sex: Female
  Weight: 104 kg

DRUGS (4)
  1. NEURONTIN [Suspect]
     Active Substance: GABAPENTIN
     Indication: PSYCHOTIC BEHAVIOUR
     Dosage: UNK
     Route: 048
  2. PROZAC [Concomitant]
     Active Substance: FLUOXETINE HYDROCHLORIDE
     Dosage: UNK
  3. NEURONTIN [Suspect]
     Active Substance: GABAPENTIN
     Indication: BIPOLAR DISORDER
     Dosage: 900 MG, 2X/DAY (THREE CAPSULES OF 300MG IN THE MORNING AND THREE CAPSULES OF 300MG IN THE EVENING)
     Route: 048
  4. AMITRIPTYLINE [Concomitant]
     Active Substance: AMITRIPTYLINE
     Dosage: UNK

REACTIONS (6)
  - Arthropathy [Unknown]
  - Pain in extremity [Unknown]
  - Cardiovascular disorder [Unknown]
  - Musculoskeletal stiffness [Unknown]
  - Bone pain [Unknown]
  - Dysstasia [Unknown]

NARRATIVE: CASE EVENT DATE: 2010
